FAERS Safety Report 7763105-3 (Version None)
Quarter: 2011Q3

REPORT INFORMATION
  Report Type: 
  Country: None (occurrence: None)
  Receive Date: 20110920
  Receipt Date: 20110909
  Transmission Date: 20111222
  Serious: Yes (Hospitalization)
  Sender: FDA-Public Use
  Company Number: FR-JNJFOC-20110905099

PATIENT
  Age: 18 Year
  Sex: Female

DRUGS (4)
  1. HYDROCORTISONE [Concomitant]
     Indication: PREMEDICATION
     Route: 042
     Dates: start: 20110801
  2. REMICADE [Suspect]
     Indication: CROHN'S DISEASE
     Dosage: THIS WAS 3RD INFUSION
     Route: 042
     Dates: start: 20110801, end: 20110801
  3. IMURAN [Concomitant]
     Indication: CROHN'S DISEASE
     Route: 065
  4. REMICADE [Suspect]
     Route: 042
     Dates: start: 20110601

REACTIONS (4)
  - RESPIRATORY DISORDER [None]
  - MALAISE [None]
  - LOSS OF CONSCIOUSNESS [None]
  - INFUSION RELATED REACTION [None]
